FAERS Safety Report 25327594 (Version 4)
Quarter: 2025Q2

REPORT INFORMATION
  Report Type: Spontaneous
  Country: BR (occurrence: BR)
  Receive Date: 20250517
  Receipt Date: 20250616
  Transmission Date: 20250717
  Serious: Yes (Death, Hospitalization, Other)
  Sender: BOEHRINGER INGELHEIM
  Company Number: BR-Komodo Health-a23aa000007ZlxhAAC

PATIENT
  Age: 38 Year
  Sex: Female
  Weight: 61 kg

DRUGS (4)
  1. GLYXAMBI [Suspect]
     Active Substance: EMPAGLIFLOZIN\LINAGLIPTIN
     Indication: Type 2 diabetes mellitus
     Dosage: FORM STRENGTH: 25/5 MILLIGRAMS;
     Dates: start: 202401
  2. GLYXAMBI [Suspect]
     Active Substance: EMPAGLIFLOZIN\LINAGLIPTIN
     Dosage: FORM STRENGTH: 25/5 MILLIGRAMS.
     Dates: start: 202409, end: 20241231
  3. GLIFAGE [Concomitant]
     Active Substance: METFORMIN HYDROCHLORIDE
     Indication: Product used for unknown indication
     Dosage: TAKING FOUR TABLETS DAILY, TWO AT BREAKFAST AND TWO AT DINNER
  4. DEVICE\INSULIN NOS [Concomitant]
     Active Substance: DEVICE\INSULIN NOS
     Indication: Product used for unknown indication

REACTIONS (39)
  - Cerebral thrombosis [Fatal]
  - Pulmonary thrombosis [Fatal]
  - Cardio-respiratory arrest [Fatal]
  - Weight decreased [Not Recovered/Not Resolved]
  - Ketoacidosis [Recovered/Resolved]
  - Guillain-Barre syndrome [Not Recovered/Not Resolved]
  - Ketoacidosis [Recovered/Resolved]
  - Rhabdomyolysis [Unknown]
  - Myelitis [Unknown]
  - Cardio-respiratory arrest [Recovered/Resolved]
  - Pneumothorax [Recovered/Resolved]
  - Pulmonary embolism [Unknown]
  - Vomiting [Recovered/Resolved]
  - Diarrhoea [Recovered/Resolved]
  - Abdominal pain upper [Recovered/Resolved]
  - Vomiting [Recovered/Resolved]
  - Diarrhoea [Recovered/Resolved]
  - Inflammatory marker increased [Recovered/Resolved]
  - Dyspnoea [Not Recovered/Not Resolved]
  - Dehydration [Recovered/Resolved]
  - Feeding disorder [Not Recovered/Not Resolved]
  - Urinary tract infection [Recovered/Resolved]
  - Blood glucose abnormal [Recovered/Resolved]
  - Gastroenteritis [Recovered/Resolved]
  - Dehydration [Recovered/Resolved]
  - Hypokalaemia [Recovered/Resolved]
  - Medical induction of coma [Recovered/Resolved]
  - Asthenia [Not Recovered/Not Resolved]
  - Pneumonia [Recovered/Resolved]
  - Dysstasia [Not Recovered/Not Resolved]
  - Abdominal infection [Recovered/Resolved]
  - Hypovitaminosis [Recovered/Resolved]
  - Pyrexia [Recovered/Resolved]
  - Clostridial infection [Recovered/Resolved]
  - Hypernatraemia [Unknown]
  - Distributive shock [Unknown]
  - Gastrointestinal disorder [Recovered/Resolved]
  - Asthenia [Unknown]
  - Blood pressure abnormal [Unknown]

NARRATIVE: CASE EVENT DATE: 20241101
